FAERS Safety Report 5074906-7 (Version None)
Quarter: 2006Q3

REPORT INFORMATION
  Report Type: 
  Country: None (occurrence: None)
  Receive Date: 20060717
  Receipt Date: 20051222
  Transmission Date: 20061208
  Serious: No
  Sender: FDA-Public Use
  Company Number: 2005002444

PATIENT
  Sex: Female

DRUGS (1)
  1. TARCEVA [Suspect]
     Dosage: ORAL
     Route: 048

REACTIONS (3)
  - ERYTHEMA OF EYELID [None]
  - EYELID PAIN [None]
  - RASH [None]
